FAERS Safety Report 5668740-4 (Version None)
Quarter: 2008Q1

REPORT INFORMATION
  Report Type: 
  Country: None (occurrence: None)
  Receive Date: 20080312
  Receipt Date: 20080312
  Transmission Date: 20080703
  Serious: Yes (Hospitalization)
  Sender: FDA-Public Use
  Company Number: None

PATIENT
  Sex: Male
  Weight: 94.7 kg

DRUGS (18)
  1. XELODA [Suspect]
     Dosage: 38600 MG
  2. ELOXATIN [Suspect]
     Dosage: 170 MG
  3. ALBUTEROL [Concomitant]
  4. ALLOPURINOL [Concomitant]
  5. AMITRIPTYLINE HCL [Concomitant]
  6. ASCENSIA [Concomitant]
  7. ATENOLOL [Concomitant]
  8. ATIVAN [Concomitant]
  9. ATROVENT [Concomitant]
  10. COMPAZINE [Concomitant]
  11. FLONASE [Concomitant]
  12. FLUTICASONE [Concomitant]
  13. KYTRIL [Concomitant]
  14. LEVAQUIN [Concomitant]
  15. LISINOPRIL [Concomitant]
  16. OXYCODONE HCL [Concomitant]
  17. PATANOL [Concomitant]
  18. PRILOSEC [Concomitant]

REACTIONS (3)
  - ABDOMINAL PAIN [None]
  - NEUTROPENIA [None]
  - PNEUMONIA [None]
